FAERS Safety Report 25476813 (Version 2)
Quarter: 2025Q3

REPORT INFORMATION
  Report Type: Report from Study
  Country: US (occurrence: US)
  Receive Date: 20250625
  Receipt Date: 20250701
  Transmission Date: 20251021
  Serious: No
  Sender: ACADIA PHARMACEUTICALS
  Company Number: US-ACADIA PHARMACEUTICALS INC.-ACA-2025-PIM-007435

PATIENT
  Sex: Male

DRUGS (11)
  1. NUPLAZID [Suspect]
     Active Substance: PIMAVANSERIN TARTRATE
     Indication: Parkinson^s disease psychosis
     Dosage: 34 MILLIGRAM, QD
     Route: 048
     Dates: start: 20240322
  2. ASPIRIN [Concomitant]
     Active Substance: ASPIRIN
  3. ATENOLOL [Concomitant]
     Active Substance: ATENOLOL
  4. CARBIDOPA\LEVODOPA [Concomitant]
     Active Substance: CARBIDOPA\LEVODOPA
  5. CHOLECALCIFEROL [Concomitant]
     Active Substance: CHOLECALCIFEROL
  6. CITALOPRAM [Concomitant]
     Active Substance: CITALOPRAM
  7. FINASTERIDE [Concomitant]
     Active Substance: FINASTERIDE
  8. FLECAINIDE [Concomitant]
     Active Substance: FLECAINIDE
  9. LOSARTAN [Concomitant]
     Active Substance: LOSARTAN
  10. QUETIAPINE [Concomitant]
     Active Substance: QUETIAPINE
  11. TAMSULOSIN [Concomitant]
     Active Substance: TAMSULOSIN

REACTIONS (1)
  - Joint dislocation [Recovered/Resolved]
